FAERS Safety Report 7663494-4 (Version None)
Quarter: 2011Q3

REPORT INFORMATION
  Report Type: 
  Country: None (occurrence: None)
  Receive Date: 20110805
  Receipt Date: 20100916
  Transmission Date: 20111222
  Serious: No
  Sender: FDA-Public Use
  Company Number: US-ABBOTT-10P-163-0671047-00

PATIENT
  Sex: Female
  Weight: 71.278 kg

DRUGS (1)
  1. NIASPAN [Suspect]
     Indication: BLOOD CHOLESTEROL INCREASED
     Dosage: AT BED TIME
     Dates: start: 20100911, end: 20100913

REACTIONS (3)
  - NERVOUSNESS [None]
  - SPEECH DISORDER [None]
  - GENERALISED ERYTHEMA [None]
